FAERS Safety Report 5388979-5 (Version None)
Quarter: 2007Q3

REPORT INFORMATION
  Report Type: 
  Country: None (occurrence: None)
  Receive Date: 20070717
  Receipt Date: 20070705
  Transmission Date: 20080115
  Serious: Yes (Other)
  Sender: FDA-Public Use
  Company Number: PHBS2007JP09372

PATIENT
  Age: 70 Year
  Sex: Male
  Weight: 58 kg

DRUGS (7)
  1. COMTAN [Suspect]
     Indication: PARKINSON'S DISEASE
     Dosage: 100 MG, 5QD
     Route: 048
     Dates: start: 20070529, end: 20070530
  2. COMTAN [Suspect]
     Dosage: 500MG/D
     Route: 048
     Dates: start: 20070531
  3. LEVODOPA [Concomitant]
     Dosage: 4.5DF/D
     Route: 048
  4. MENESIT [Concomitant]
     Indication: PARKINSON'S DISEASE
     Dosage: 600 MG/D
     Route: 048
  5. RIVOTRIL [Concomitant]
     Indication: TREMOR
     Dosage: 2.5 MG/D
     Route: 048
  6. ARTANE [Concomitant]
     Indication: PARKINSON'S DISEASE
     Dosage: 2 MG/D
     Route: 048
     Dates: end: 20070531
  7. GASMOTIN [Concomitant]
     Dosage: 10 MG/D
     Route: 048
     Dates: start: 20070525

REACTIONS (4)
  - EATING DISORDER [None]
  - FLUID REPLACEMENT [None]
  - PYREXIA [None]
  - TREMOR [None]
